FAERS Safety Report 7512693-0 (Version None)
Quarter: 2011Q2

REPORT INFORMATION
  Report Type: 
  Country: None (occurrence: None)
  Receive Date: 20110531
  Receipt Date: 20110516
  Transmission Date: 20111010
  Serious: Yes (Hospitalization)
  Sender: FDA-Public Use
  Company Number: JP-ASTRAZENECA-2011SE24339

PATIENT
  Age: 1308 Day
  Sex: Female

DRUGS (4)
  1. MEROPENEM [Suspect]
     Indication: FEBRILE NEUTROPENIA
     Route: 042
     Dates: start: 20110210, end: 20110222
  2. PRODIF [Concomitant]
     Dates: start: 20110210, end: 20110217
  3. DEXART [Concomitant]
     Dates: end: 20110216
  4. FAMOTIDINE [Concomitant]
     Dates: end: 20110216

REACTIONS (1)
  - LIVER DISORDER [None]
